FAERS Safety Report 7120641-0 (Version None)
Quarter: 2010Q4

REPORT INFORMATION
  Report Type: 
  Country: None (occurrence: None)
  Receive Date: 20101119
  Receipt Date: 20101119
  Transmission Date: 20110411
  Serious: No
  Sender: FDA-Public Use
  Company Number: None

PATIENT
  Sex: Female
  Weight: 20.4119 kg

DRUGS (1)
  1. CEFPROZIL [Suspect]
     Indication: PNEUMONIA
     Dates: start: 20101101, end: 20101104

REACTIONS (8)
  - EPISTAXIS [None]
  - OEDEMA PERIPHERAL [None]
  - PRURITUS [None]
  - RASH ERYTHEMATOUS [None]
  - RASH VESICULAR [None]
  - RESPIRATORY DISORDER [None]
  - URTICARIA [None]
  - VOMITING [None]
